FAERS Safety Report 5952649-2 (Version None)
Quarter: 2008Q4

REPORT INFORMATION
  Report Type: 
  Country: None (occurrence: None)
  Receive Date: 20081029
  Receipt Date: 20080923
  Transmission Date: 20090506
  Serious: Yes (Other)
  Sender: FDA-Public Use
  Company Number: 177793USA

PATIENT
  Age: 20 Year
  Sex: Female

DRUGS (4)
  1. VALPROIC ACID [Suspect]
     Indication: CONVULSION
     Dosage: 875 MG (125 MG,7 IN 1 D),ORAL
     Route: 048
     Dates: start: 20080905, end: 20080901
  2. LEVETIRACETAM [Concomitant]
  3. METHYLPHENIDATE HCL [Concomitant]
  4. MODAFINIL [Concomitant]

REACTIONS (5)
  - DRUG INEFFECTIVE [None]
  - FEELING ABNORMAL [None]
  - GRAND MAL CONVULSION [None]
  - HEADACHE [None]
  - HYPERHIDROSIS [None]
